FAERS Safety Report 4353639-6 (Version None)
Quarter: 2004Q2

REPORT INFORMATION
  Report Type: 
  Country: None (occurrence: None)
  Receive Date: 20040430
  Receipt Date: 20040413
  Transmission Date: 20050107
  Serious: Yes (Hospitalization)
  Sender: FDA-Public Use
  Company Number: 200402601

PATIENT
  Age: 58 Year
  Sex: Male

DRUGS (11)
  1. ZYMAR [Suspect]
     Indication: CONJUNCTIVITIS
     Dosage: 2 DROP Q4HR EYE
  2. ESORDIL [Concomitant]
  3. DIVELOL [Concomitant]
  4. ALDACTONE [Concomitant]
  5. FORMALGIN [Concomitant]
  6. DIGOXINA [Concomitant]
  7. CAPTOPRIL [Concomitant]
  8. LASIX [Concomitant]
  9. IDANTAL [Concomitant]
  10. MOTILIUM [Concomitant]
  11. SELIMALOL [Concomitant]

REACTIONS (4)
  - ARRHYTHMIA [None]
  - HYPERAEMIA [None]
  - STEVENS-JOHNSON SYNDROME [None]
  - VISUAL ACUITY REDUCED [None]
